FAERS Safety Report 11158799 (Version 2)
Quarter: 2015Q2

REPORT INFORMATION
  Report Type: Report from Study
  Country: TW (occurrence: TW)
  Receive Date: 20150603
  Receipt Date: 20150623
  Transmission Date: 20150821
  Serious: Yes (Hospitalization)
  Sender: FDA-Public Use
  Company Number: TW-ABBVIE-15K-153-1397836-00

PATIENT
  Age: 72 Year
  Sex: Female
  Weight: 46 kg

DRUGS (9)
  1. COMPESOLON [Concomitant]
     Indication: RHEUMATOID ARTHRITIS
     Route: 048
     Dates: start: 20100325
  2. ALENDRONATE SANDOZ [Concomitant]
     Active Substance: ALENDRONATE SODIUM
     Indication: OSTEOPOROSIS
     Route: 048
     Dates: start: 20100325
  3. METHYCOBAL [Concomitant]
     Active Substance: METHYLCOBALAMIN
     Indication: HYPERTENSION
     Dosage: 1#
     Route: 048
     Dates: start: 20100325
  4. COAPROVEL [Concomitant]
     Active Substance: HYDROCHLOROTHIAZIDE\IRBESARTAN
     Indication: HYPERTENSION
     Dosage: 1#
     Route: 048
     Dates: start: 20100325
  5. DEPYRETIN [Concomitant]
     Indication: RHEUMATOID ARTHRITIS
     Route: 048
     Dates: start: 20100325
  6. FUROSEMIDE. [Concomitant]
     Active Substance: FUROSEMIDE
     Indication: HYPERTENSION
     Dosage: 20 MG
     Route: 048
     Dates: start: 20100325
  7. HUMIRA [Suspect]
     Active Substance: ADALIMUMAB
     Indication: RHEUMATOID ARTHRITIS
     Route: 058
     Dates: start: 20100325, end: 20150507
  8. ATORVASTATIN [Concomitant]
     Active Substance: ATORVASTATIN
     Indication: HYPERLIPIDAEMIA
     Route: 048
     Dates: start: 20100325
  9. INSULATARD HM [Concomitant]
     Indication: DIABETES MELLITUS
     Route: 058
     Dates: start: 20150507, end: 20150521

REACTIONS (7)
  - Purulent discharge [Recovering/Resolving]
  - Wound complication [Recovering/Resolving]
  - Feeling hot [Unknown]
  - Injury [Recovered/Resolved]
  - Fall [Unknown]
  - Wound infection [Recovering/Resolving]
  - Wound complication [Unknown]

NARRATIVE: CASE EVENT DATE: 2015
